FAERS Safety Report 10167008 (Version 2)
Quarter: 2014Q2

REPORT INFORMATION
  Report Type: Spontaneous
  Country: US (occurrence: None)
  Receive Date: 20140508
  Receipt Date: 20140528
  Transmission Date: 20141212
  Serious: Yes (Hospitalization, Other)
  Sender: FDA-Public Use
  Company Number: AXC-2014-000304

PATIENT
  Age: 31 Year
  Sex: Male
  Weight: 65.8 kg

DRUGS (4)
  1. ZENPEP [Suspect]
     Indication: PANCREATITIS
     Dosage: WITH MEALS.
     Route: 048
     Dates: start: 201312
  2. ZENPEP [Suspect]
     Indication: PANCREATITIS
     Dosage: 25000 USP, WITH MEALS.
     Route: 048
     Dates: end: 201403
  3. PERCOCET/ (OXYCODONE HYDROCHLORIDE, OXYCODONE TEREPHTHALATE, PARACETAMOL) [Concomitant]
  4. AMITRIPTYLINE (AMITRIPTYLINE) [Concomitant]

REACTIONS (4)
  - Disease progression [None]
  - Abdominal pain [None]
  - Pancreatitis acute [None]
  - Pancreatitis chronic [None]
